FAERS Safety Report 6834658-4 (Version None)
Quarter: 2010Q3

REPORT INFORMATION
  Report Type: 
  Country: None (occurrence: None)
  Receive Date: 20100712
  Receipt Date: 20070416
  Transmission Date: 20110219
  Serious: No
  Sender: FDA-Public Use
  Company Number: US-PFIZER INC-2007030793

PATIENT
  Sex: Female
  Weight: 90.9 kg

DRUGS (10)
  1. CHANTIX [Suspect]
     Indication: SMOKING CESSATION THERAPY
     Dates: start: 20070410
  2. MORPHINE SULFATE [Concomitant]
  3. TRAZODONE HYDROCHLORIDE [Concomitant]
  4. ANTI-PARKINSON AGENTS [Concomitant]
  5. XANAX [Concomitant]
  6. NEURONTIN [Concomitant]
  7. CELEBREX [Concomitant]
  8. STOOL SOFTENER [Concomitant]
  9. ACETYLSALICYLIC ACID [Concomitant]
  10. PAXIL [Concomitant]

REACTIONS (2)
  - DYSGEUSIA [None]
  - HEADACHE [None]
